FAERS Safety Report 10196172 (Version 1)
Quarter: 2014Q2

REPORT INFORMATION
  Report Type: Spontaneous
  Country: BR (occurrence: BR)
  Receive Date: 20140527
  Receipt Date: 20140527
  Transmission Date: 20141212
  Serious: Yes (Death, Other)
  Sender: FDA-Public Use
  Company Number: BR-ELI_LILLY_AND_COMPANY-BR201405006765

PATIENT
  Age: 39 Year
  Sex: Male

DRUGS (1)
  1. GEMCITABINE HYDROCHLORIDE [Suspect]
     Indication: NASOPHARYNGEAL CANCER
     Dosage: 1250 MG/M2, OTHER
     Route: 065

REACTIONS (3)
  - Death [Fatal]
  - Thrombotic microangiopathy [Unknown]
  - Shock [Unknown]
